FAERS Safety Report 4299607-4 (Version None)
Quarter: 2004Q1

REPORT INFORMATION
  Report Type: 
  Country: None (occurrence: None)
  Receive Date: 20040217
  Receipt Date: 20040130
  Transmission Date: 20041129
  Serious: Yes (Other)
  Sender: FDA-Public Use
  Company Number: DSA_23946_2004

PATIENT
  Age: 33 Year
  Sex: Female

DRUGS (62)
  1. LORAZEPAM [Suspect]
     Indication: AGITATION
     Dosage: 1 MG PRN PO
     Route: 048
     Dates: start: 20011109, end: 20011117
  2. LORAZEPAM [Suspect]
     Indication: AGITATION
     Dosage: 1 MG BID PO
     Route: 048
     Dates: start: 20011118, end: 20011202
  3. ACTRAPID HUMAN [Suspect]
     Dosage: 50 ML Q DAY IV
     Route: 042
     Dates: start: 20011124, end: 20011202
  4. AMINOSTERIL [Suspect]
     Dosage: 2000 ML ONCE IV
     Route: 042
     Dates: start: 20011124, end: 20011130
  5. AUGMENTIN [Suspect]
     Dosage: 2.2 G TID IV
     Route: 042
     Dates: start: 20011121, end: 20011123
  6. BIFITERAL [Suspect]
     Dosage: 60 ML QID PO
     Route: 048
     Dates: start: 20011128, end: 20011205
  7. CIPROBAY [Suspect]
     Dosage: 200 MG BID
     Dates: start: 20011121, end: 20011123
  8. CLAFORAN [Suspect]
     Dosage: 2 G TID IV
     Route: 042
     Dates: start: 20011130, end: 20011201
  9. CLONIDINE [Suspect]
     Dosage: 6 IV
     Route: 042
     Dates: start: 20011205, end: 20011207
  10. COTRIM [Suspect]
     Dosage: 960 MG BID IV
     Route: 042
     Dates: start: 20011116, end: 20011120
  11. DIFLUCAN [Suspect]
     Dosage: 200 MG QD IV
     Route: 042
     Dates: start: 20011118, end: 20011120
  12. MIDAZOLAM HCL [Suspect]
     Dosage: 120 MG Q DAY IV
     Route: 042
     Dates: start: 20011113, end: 20011117
  13. FERROUS GLUCONATE [Suspect]
     Dates: start: 20011205, end: 20011205
  14. FOSFOCIN [Suspect]
     Dosage: 2 G TID IV
     Route: 042
     Dates: start: 20011130, end: 20011205
  15. FRAXIPARINE [Suspect]
     Dates: start: 20011117, end: 20011124
  16. HEPA-MERZ [Suspect]
     Dates: start: 20011124, end: 20011128
  17. HEPARIN [Suspect]
  18. KETANEST [Suspect]
     Dosage: 2.5 G ONCE IV
     Route: 042
     Dates: start: 20011205, end: 20011205
  19. LAMICTAL [Suspect]
     Dosage: 12.5 MG TID PO
     Route: 048
     Dates: start: 20011118, end: 20011124
  20. LAMICTAL [Suspect]
     Dosage: 12.5 MG QD PO
     Route: 048
     Dates: start: 20011112, end: 20011114
  21. LASIX [Suspect]
     Dosage: 500 MG QD IV
     Route: 042
     Dates: start: 20011109, end: 20011126
  22. LIPOFUNDIN [Suspect]
     Dates: start: 20011120, end: 20011205
  23. LIMQUEMINE [Suspect]
     Dosage: 20000 IU QD IV
     Route: 042
     Dates: start: 20011126, end: 20011203
  24. NOVALGINA [Suspect]
     Dates: start: 20011128, end: 20011202
  25. NOVODIGAL [Suspect]
     Dosage: 0.2 MG QD IV
     Route: 042
     Dates: start: 20011121, end: 20011202
  26. RANITIDINE [Suspect]
     Dosage: 100 MG QD IV
     Route: 042
     Dates: start: 20011123, end: 20011126
  27. RIVOTRIL [Suspect]
     Dates: start: 20011112, end: 20011205
  28. SAB SIMPLEX [Suspect]
  29. THEOPHYLLINE [Suspect]
     Dosage: 6 MG Q1HR IV
     Route: 042
     Dates: start: 20011205, end: 20011207
  30. URSODEOXYCHOLIC ACID [Suspect]
     Dates: start: 20011123, end: 20011128
  31. DOBUTAMINE [Concomitant]
  32. MULTIVITAMIN [Concomitant]
  33. MAGNESIUM SULFATE [Concomitant]
  34. XANEF [Concomitant]
  35. NOREPINEPHRINE BITARTRATE [Concomitant]
  36. SOLU-DECORTIN-H [Concomitant]
  37. GLUCOSE [Concomitant]
  38. KONAKION [Concomitant]
  39. MULTIVITAMIN [Concomitant]
  40. HYDROCHLORIDE RETINOL [Concomitant]
  41. DIPIDOLOR [Concomitant]
  42. PASPERTIN [Concomitant]
  43. KETAMINE HCL [Concomitant]
  44. CLONT [Concomitant]
  45. FENTANYL [Concomitant]
  46. ATOSIL [Concomitant]
  47. BRICANYL [Concomitant]
  48. VANCOMYCIN [Concomitant]
  49. AKINETON [Concomitant]
  50. ZIENAM [Concomitant]
  51. ERGENYL [Concomitant]
  52. PANTOZOL [Concomitant]
  53. NUTRIFLEX [Concomitant]
  54. ALBUMIN (HUMAN) [Concomitant]
  55. THIAMINE HCL [Concomitant]
  56. VITAMIN B COMPLEX CAP [Concomitant]
  57. FERRO-FALSAN [Concomitant]
  58. SODIUM CHLORIDE INJ [Concomitant]
  59. OTRIVEN [Concomitant]
  60. NYSTATIN [Concomitant]
  61. HEPARIN CALCIUM [Concomitant]
  62. POTASSIUM CHLORIDE [Concomitant]

REACTIONS (4)
  - ANGIOPATHY [None]
  - SEPSIS [None]
  - STEVENS-JOHNSON SYNDROME [None]
  - TOXIC EPIDERMAL NECROLYSIS [None]
